FAERS Safety Report 7788314-9 (Version None)
Quarter: 2011Q3

REPORT INFORMATION
  Report Type: 
  Country: None (occurrence: None)
  Receive Date: 20110930
  Receipt Date: 20110922
  Transmission Date: 20111222
  Serious: Yes (Hospitalization)
  Sender: FDA-Public Use
  Company Number: AT-ASTELLAS-2011EU006591

PATIENT
  Age: 58 Year
  Sex: Male

DRUGS (1)
  1. MYCAMINE [Suspect]
     Dosage: 150 MG, UNKNOWN/D
     Route: 065

REACTIONS (1)
  - CANDIDIASIS [None]
